FAERS Safety Report 5096106-7 (Version None)
Quarter: 2006Q3

REPORT INFORMATION
  Report Type: 
  Country: None (occurrence: None)
  Receive Date: 20060731
  Receipt Date: 20060512
  Transmission Date: 20061208
  Serious: No
  Sender: FDA-Public Use
  Company Number: 2006PV013776

PATIENT
  Age: 66 Year
  Sex: Female
  Weight: 74.3899 kg

DRUGS (5)
  1. BYETTA [Suspect]
     Indication: DIABETES MELLITUS NON-INSULIN-DEPENDENT
     Dosage: 10 MCG;BID;SC
     Route: 058
     Dates: start: 20060201
  2. BYETTA [Suspect]
     Dosage: SC
     Route: 058
     Dates: start: 20051101, end: 20051101
  3. GLUCOPHAGE [Suspect]
     Indication: DRUG USE FOR UNKNOWN INDICATION
  4. STARLIX [Concomitant]
  5. ACTOS/USA/ [Concomitant]

REACTIONS (5)
  - BLOOD CREATININE INCREASED [None]
  - DECREASED APPETITE [None]
  - URINARY TRACT INFECTION [None]
  - WEIGHT DECREASED [None]
  - WEIGHT INCREASED [None]
